FAERS Safety Report 6618894-8 (Version None)
Quarter: 2010Q1

REPORT INFORMATION
  Report Type: 
  Country: None (occurrence: None)
  Receive Date: 20100308
  Receipt Date: 20100302
  Transmission Date: 20100710
  Serious: Yes (Death, Hospitalization)
  Sender: FDA-Public Use
  Company Number: US-SANOFI-AVENTIS-2009SA002629

PATIENT
  Sex: Male

DRUGS (2)
  1. LANTUS [Suspect]
     Dosage: DOSE:10 UNIT(S)
     Route: 058
     Dates: start: 20091001
  2. SOLOSTAR [Suspect]
     Dosage: DOSE:10 UNIT(S)
     Route: 058
     Dates: start: 20091001

REACTIONS (3)
  - BLOOD GLUCOSE INCREASED [None]
  - DEATH [None]
  - HOSPITALISATION [None]
